FAERS Safety Report 7364947-9 (Version None)
Quarter: 2011Q1

REPORT INFORMATION
  Report Type: 
  Country: None (occurrence: None)
  Receive Date: 20110321
  Receipt Date: 20110222
  Transmission Date: 20110831
  Serious: No
  Sender: FDA-Public Use
  Company Number: US-B.I. PHARMACEUTICALS,INC./RIDGEFIELD-2011-BP-06522BP

PATIENT
  Sex: Male

DRUGS (6)
  1. MULTIVITAMIN [Concomitant]
     Indication: PROPHYLAXIS
  2. SIMVASTATIN [Concomitant]
     Indication: BLOOD CHOLESTEROL INCREASED
  3. FISH OIL [Concomitant]
     Indication: PROPHYLAXIS
  4. PRADAXA [Suspect]
     Indication: ATRIAL FIBRILLATION
     Dosage: 300 MG
     Route: 048
     Dates: start: 20110101
  5. OMEPRAZOLE [Concomitant]
     Indication: GASTROOESOPHAGEAL REFLUX DISEASE
  6. TERAZOSIN HCL [Concomitant]
     Indication: PROSTATOMEGALY

REACTIONS (2)
  - GAIT DISTURBANCE [None]
  - DIZZINESS [None]
